FAERS Safety Report 4639183-7 (Version None)
Quarter: 2005Q2

REPORT INFORMATION
  Report Type: 
  Country: None (occurrence: None)
  Receive Date: 20050419
  Receipt Date: 20050323
  Transmission Date: 20051028
  Serious: Yes (Death, Other)
  Sender: FDA-Public Use
  Company Number: US-BRISTOL-MYERS SQUIBB COMPANY-12911384

PATIENT
  Sex: Male

DRUGS (1)
  1. SINEMET [Suspect]

REACTIONS (3)
  - DEATH [None]
  - DRUG INEFFECTIVE [None]
  - PRODUCTIVE COUGH [None]
